FAERS Safety Report 7593786-9 (Version None)
Quarter: 2011Q3

REPORT INFORMATION
  Report Type: 
  Country: None (occurrence: None)
  Receive Date: 20110706
  Receipt Date: 20110623
  Transmission Date: 20111222
  Serious: Yes (Other)
  Sender: FDA-Public Use
  Company Number: PHHY2011CA50536

PATIENT
  Age: 72 Year
  Sex: Female

DRUGS (1)
  1. ZOLEDRONIC ACID [Suspect]
     Dosage: 5 MG, UNK
     Route: 042

REACTIONS (2)
  - IRITIS [None]
  - EYE INFLAMMATION [None]
